FAERS Safety Report 9361042 (Version 1)
Quarter: 2013Q2

REPORT INFORMATION
  Report Type: Spontaneous
  Country: US (occurrence: US)
  Receive Date: 20130621
  Receipt Date: 20130621
  Transmission Date: 20140414
  Serious: Yes (Other)
  Sender: FDA-Public Use
  Company Number: US-MYLANLABS-2013S1013157

PATIENT
  Age: 30 Year
  Sex: Female
  Weight: 50 kg

DRUGS (4)
  1. REMIFENTANIL [Suspect]
     Indication: ANALGESIC THERAPY
     Route: 042
  2. UNFRACTIONATED HEPARIN [Concomitant]
     Indication: ANTICOAGULANT THERAPY
     Route: 058
  3. MISOPROSTOL [Concomitant]
     Indication: INDUCTION OF CERVIX RIPENING
  4. FENTANYL [Concomitant]
     Indication: ANALGESIC THERAPY
     Route: 042

REACTIONS (5)
  - Toxicity to various agents [Unknown]
  - Bradycardia [Unknown]
  - Respiratory arrest [Unknown]
  - Lung disorder [Unknown]
  - Incorrect dose administered [Unknown]
